FAERS Safety Report 5367242-2 (Version None)
Quarter: 2007Q2

REPORT INFORMATION
  Report Type: 
  Country: None (occurrence: None)
  Receive Date: 20070622
  Receipt Date: 20070614
  Transmission Date: 20071010
  Serious: Yes (Other)
  Sender: FDA-Public Use
  Company Number: JP-ASTRAZENECA-2007AP03109

PATIENT
  Age: 59 Year
  Sex: Female

DRUGS (2)
  1. CRESTOR [Suspect]
     Indication: HYPERCHOLESTEROLAEMIA
     Route: 048
     Dates: start: 20070508, end: 20070524
  2. VASOLAN [Suspect]
     Route: 048
     Dates: start: 20070508, end: 20070524

REACTIONS (1)
  - OCULOMUCOCUTANEOUS SYNDROME [None]
